FAERS Safety Report 18202778 (Version 1)
Quarter: 2020Q3

REPORT INFORMATION
  Report Type: Spontaneous
  Country: US (occurrence: US)
  Receive Date: 20200827
  Receipt Date: 20200827
  Transmission Date: 20201103
  Serious: No
  Sender: FDA-Public Use
  Company Number: US-PFIZER INC-2020330426

PATIENT
  Age: 45 Year
  Sex: Female
  Weight: 136.08 kg

DRUGS (2)
  1. GABAPENTIN. [Suspect]
     Active Substance: GABAPENTIN
     Indication: NERVE INJURY
     Dosage: 1600 MG, 3X/DAY (800 MG AND I TAKE 2 PILLS, 3 TIME A DAY)
  2. NEURONTIN [Suspect]
     Active Substance: GABAPENTIN
     Indication: NERVE INJURY
     Dosage: 1600 MG, 3X/DAY (800 MG AND I TAKE 2 PILLS, 3 TIME A DAY)

REACTIONS (4)
  - Malaise [Unknown]
  - Off label use [Unknown]
  - Product use in unapproved indication [Unknown]
  - Overdose [Unknown]
